FAERS Safety Report 6064813-5 (Version None)
Quarter: 2009Q1

REPORT INFORMATION
  Report Type: 
  Country: None (occurrence: None)
  Receive Date: 20090204
  Receipt Date: 20090127
  Transmission Date: 20090719
  Serious: Yes (Other)
  Sender: FDA-Public Use
  Company Number: DE-ROCHE-611136

PATIENT
  Age: 70 Year
  Sex: Male

DRUGS (1)
  1. RIVOTRIL [Suspect]
     Indication: DRUG USE FOR UNKNOWN INDICATION
     Route: 048
     Dates: start: 20060101

REACTIONS (5)
  - AGITATION [None]
  - ANXIETY [None]
  - CEREBRAL MICROANGIOPATHY [None]
  - GAIT DISTURBANCE [None]
  - VISUAL IMPAIRMENT [None]
